FAERS Safety Report 21553259 (Version 1)
Quarter: 2022Q4

REPORT INFORMATION
  Report Type: Spontaneous
  Country: US (occurrence: US)
  Receive Date: 20221104
  Receipt Date: 20221104
  Transmission Date: 20230113
  Serious: No
  Sender: FDA-Public Use
  Company Number: US-REDHILL-2022RDH00116

PATIENT
  Age: 69 Year
  Sex: Female
  Weight: 49.887 kg

DRUGS (4)
  1. MOVANTIK [Suspect]
     Active Substance: NALOXEGOL OXALATE
     Indication: Constipation
     Dosage: 25 MG, 1X/DAY
     Route: 048
     Dates: start: 20220609
  2. ^ROBAXIN^ [Concomitant]
     Dosage: UNK UNK, 1X/MONTH (EVERY 4 WEEKS) ^FOR HER CANCER TREATMENT^
  3. NORCO [Concomitant]
     Active Substance: ACETAMINOPHEN\HYDROCODONE BITARTRATE
     Dosage: FORM STRENGTH:10/325 MG; (1 DOSAGE FORM, 4X/DAY)
  4. HUMAN IMMUNOGLOBULIN G [Concomitant]
     Active Substance: HUMAN IMMUNOGLOBULIN G
     Dosage: UNK, 1X/MONTH (EVERY 4 WEEKS)

REACTIONS (1)
  - Drug withdrawal syndrome [Recovered/Resolved]

NARRATIVE: CASE EVENT DATE: 20220609
